FAERS Safety Report 7792633-X (Version None)
Quarter: 2011Q4

REPORT INFORMATION
  Report Type: 
  Country: None (occurrence: None)
  Receive Date: 20111003
  Receipt Date: 20110923
  Transmission Date: 20120403
  Serious: Yes (Hospitalization)
  Sender: FDA-Public Use
  Company Number: GB-ROCHE-601397

PATIENT
  Sex: Female
  Weight: 75.6 kg

DRUGS (4)
  1. XELODA [Suspect]
     Indication: COLON CANCER
     Dosage: CURRENT CYCLE-4. DATE MOST RECENT DOSE GIVEN: 28 NOVEMBER 2008.
     Route: 048
  2. XELODA [Suspect]
     Dosage: DOSE REDUCTION 50%.
     Route: 048
  3. PYRIDOXINE HCL [Concomitant]
     Indication: PALMAR-PLANTAR ERYTHRODYSAESTHESIA SYNDROME
     Dosage: DATE OF MOST RECENT DOSE: 09 DECEMBER 2008.
     Route: 048
  4. AVASTIN [Suspect]
     Indication: COLON CANCER
     Dosage: DOSE FORM-INFUSION, MOST RECENT DOSE GIVEN:28 NOVEMBER 2008, DOSE REDUCTION-NONE, CURRENT CYCLE-4.
     Route: 042

REACTIONS (1)
  - CEREBRAL ISCHAEMIA [None]
